FAERS Safety Report 12626580 (Version 1)
Quarter: 2016Q3

REPORT INFORMATION
  Report Type: Spontaneous
  Country: CA (occurrence: CA)
  Receive Date: 20160805
  Receipt Date: 20160805
  Transmission Date: 20161109
  Serious: Yes (Other)
  Sender: FDA-Public Use
  Company Number: CA-DSJP-DSU-2016-126105

PATIENT

DRUGS (1)
  1. OLMETEC PLUS 40/12.5 [Suspect]
     Active Substance: HYDROCHLOROTHIAZIDE\OLMESARTAN MEDOXOMIL
     Indication: BLOOD PRESSURE INCREASED
     Dosage: 40/12.5 MG, UNK

REACTIONS (1)
  - Creatinine renal clearance decreased [Unknown]
